FAERS Safety Report 9084002 (Version 2)
Quarter: 2013Q1

REPORT INFORMATION
  Report Type: Spontaneous
  Country: US (occurrence: US)
  Receive Date: 20130218
  Receipt Date: 20130226
  Transmission Date: 20140127
  Serious: Yes (Death, Hospitalization, Other)
  Sender: FDA-Public Use
  Company Number: PHEH2013US003915

PATIENT
  Sex: Female

DRUGS (1)
  1. EXJADE [Suspect]
     Indication: SICKLE CELL ANAEMIA
     Dosage: 1500 MG, DAILY
     Route: 048

REACTIONS (26)
  - Acute respiratory failure [Fatal]
  - Metabolic acidosis [Fatal]
  - Septic shock [Fatal]
  - Coagulopathy [Fatal]
  - Sickle cell anaemia with crisis [Fatal]
  - Haemorrhagic stroke [Fatal]
  - Ischaemic stroke [Fatal]
  - Sarcoidosis [Unknown]
  - Leukocytosis [Unknown]
  - Hyperbilirubinaemia [Unknown]
  - Pain [Unknown]
  - Anaemia [Unknown]
  - Respiratory distress [Unknown]
  - Haemorrhage intracranial [Unknown]
  - Bradycardia [Unknown]
  - Hyperkalaemia [Unknown]
  - Epistaxis [Unknown]
  - Reticulocyte count increased [Unknown]
  - International normalised ratio increased [Unknown]
  - Mydriasis [Unknown]
  - Hypotension [Unknown]
  - Blood potassium increased [Unknown]
  - Blood bicarbonate increased [Unknown]
  - Renal failure [Unknown]
  - Blood creatinine increased [Unknown]
  - Body temperature increased [Unknown]
